FAERS Safety Report 6487424-6 (Version None)
Quarter: 2009Q4

REPORT INFORMATION
  Report Type: 
  Country: None (occurrence: None)
  Receive Date: 20091123
  Receipt Date: 20090923
  Transmission Date: 20100525
  Serious: No
  Sender: FDA-Public Use
  Company Number: 8052622

PATIENT
  Age: 72 Year
  Sex: Female
  Weight: 105.2 kg

DRUGS (8)
  1. CIMZIA [Suspect]
     Indication: CROHN'S DISEASE
     Dosage: 400 MG SC
     Route: 058
     Dates: start: 20090916
  2. CYMBALTA [Concomitant]
  3. GLUCOTROL XL [Concomitant]
  4. NEURONTIN [Concomitant]
  5. ATACAND [Concomitant]
  6. VYTORIN [Concomitant]
  7. COUMADIN [Concomitant]
  8. DILTIAZEM HCL [Concomitant]

REACTIONS (2)
  - DECREASED APPETITE [None]
  - DIARRHOEA [None]
